FAERS Safety Report 5737972-9 (Version None)
Quarter: 2008Q2

REPORT INFORMATION
  Report Type: 
  Country: None (occurrence: None)
  Receive Date: 20080509
  Receipt Date: 20080429
  Transmission Date: 20081010
  Serious: Yes (Other)
  Sender: FDA-Public Use
  Company Number: TPA2008A00224

PATIENT
  Age: 55 Year
  Sex: Male
  Weight: 118.8424 kg

DRUGS (10)
  1. ACTOS [Suspect]
     Indication: TYPE 2 DIABETES MELLITUS
     Dosage: 15 MG, 1 IN 1 D, PER ORAL
     Route: 048
     Dates: start: 20071001, end: 20080218
  2. DIOVAN HCT [Concomitant]
  3. DIOVAN (ANTIHYPERTENSIVES) [Concomitant]
  4. BYETTA (ANTI-DIABETICS)(INJECTION) [Concomitant]
  5. LEXAPRO (ESCITALOPRAM OXALATE) (20 MILLIGRAM) [Concomitant]
  6. LORAZEPAM [Concomitant]
  7. MUCLNEX-D (GUAIFENESIN, PSEUDOEPHEDRINE HYDROCHLORIDE) [Concomitant]
  8. ADVAIR DISKUS 100/50 [Concomitant]
  9. AMBIEN CR [Concomitant]
  10. PROTONIX [Concomitant]

REACTIONS (21)
  - AGITATION [None]
  - ANXIETY [None]
  - ASTHENIA [None]
  - BLOOD CREATININE INCREASED [None]
  - BLOOD UREA INCREASED [None]
  - CHILLS [None]
  - CONDITION AGGRAVATED [None]
  - DELIRIUM [None]
  - DEPRESSION [None]
  - DYSPNOEA [None]
  - GINGIVAL ERYTHEMA [None]
  - GINGIVAL PAIN [None]
  - POST PROCEDURAL HAEMORRHAGE [None]
  - PYREXIA [None]
  - RENAL FUNCTION TEST ABNORMAL [None]
  - TOOTH ABSCESS [None]
  - TOOTH FRACTURE [None]
  - TOOTH LOSS [None]
  - TOOTHACHE [None]
  - TREATMENT NONCOMPLIANCE [None]
  - WHEEZING [None]
